FAERS Safety Report 7935688-1 (Version None)
Quarter: 2011Q4

REPORT INFORMATION
  Report Type: 
  Country: None (occurrence: None)
  Receive Date: 20111123
  Receipt Date: 20111114
  Transmission Date: 20120403
  Serious: Yes (Other)
  Sender: FDA-Public Use
  Company Number: US-BAYER-2011-111675

PATIENT
  Sex: Female

DRUGS (5)
  1. LISINOPRIL [Concomitant]
     Dosage: UNK
     Dates: start: 19980101, end: 20080101
  2. YASMIN [Suspect]
     Dosage: UNK
     Dates: start: 20040101, end: 20080101
  3. YAZ [Suspect]
     Dosage: UNK
     Dates: start: 20080101
  4. HEART MEDICATIONS [Concomitant]
     Dosage: UNK
     Dates: start: 19980101, end: 20080101
  5. ANTIHYPERTENSIVES [Concomitant]
     Dosage: UNK
     Dates: start: 19980101, end: 20080101

REACTIONS (1)
  - TACHYCARDIA [None]
